FAERS Safety Report 4850657-6 (Version None)
Quarter: 2005Q4

REPORT INFORMATION
  Report Type: 
  Country: None (occurrence: None)
  Receive Date: 20051212
  Receipt Date: 20050525
  Transmission Date: 20060501
  Serious: No
  Sender: FDA-Public Use
  Company Number: US-BRISTOL-MYERS SQUIBB COMPANY-12981809

PATIENT
  Age: 59 Year
  Sex: Female
  Weight: 63 kg

DRUGS (3)
  1. QUESTRAN [Suspect]
     Indication: CROHN'S DISEASE
     Dosage: DOSAGE FORM = SCOOP
     Route: 048
     Dates: end: 20050524
  2. ZYRTEC [Concomitant]
  3. CALCIUM GLUCONATE [Concomitant]

REACTIONS (2)
  - HEPATIC ENZYME INCREASED [None]
  - HEPATIC STEATOSIS [None]
